FAERS Safety Report 13138157 (Version 1)
Quarter: 2017Q1

REPORT INFORMATION
  Report Type: Spontaneous
  Country: US (occurrence: US)
  Receive Date: 20170123
  Receipt Date: 20170123
  Transmission Date: 20170428
  Serious: No
  Sender: FDA-Public Use
  Company Number: US-UNITED THERAPEUTICS-UNT-2016-009134

PATIENT
  Age: 48 Year
  Sex: Female
  Weight: 52.15 kg

DRUGS (5)
  1. REMODULIN [Suspect]
     Active Substance: TREPROSTINIL
     Dosage: 0.011 ?G/KG, CONTINUING
     Route: 058
     Dates: start: 20160520
  2. REMODULIN [Suspect]
     Active Substance: TREPROSTINIL
     Dosage: 0.017 ?G/KG, CONTINUING
     Route: 058
  3. REMODULIN [Suspect]
     Active Substance: TREPROSTINIL
     Dosage: 0.018 ?G/KG, CONTINUING
     Route: 058
  4. REMODULIN [Suspect]
     Active Substance: TREPROSTINIL
     Indication: PULMONARY HYPERTENSION
     Dosage: 0.021 ?G/KG, CONTINUING
     Route: 058
     Dates: start: 20160519
  5. ADCIRCA [Concomitant]
     Active Substance: TADALAFIL
     Indication: PRODUCT USED FOR UNKNOWN INDICATION

REACTIONS (11)
  - Pallor [Unknown]
  - Infusion site discomfort [Unknown]
  - Infusion site pain [Recovering/Resolving]
  - Infusion site induration [Unknown]
  - Diarrhoea [Unknown]
  - Infusion site erythema [Unknown]
  - Fatigue [Unknown]
  - Device issue [Unknown]
  - Dyspnoea exertional [Unknown]
  - Pain in jaw [Unknown]
  - Malaise [Unknown]

NARRATIVE: CASE EVENT DATE: 201606
